FAERS Safety Report 6126640-X (Version None)
Quarter: 2009Q1

REPORT INFORMATION
  Report Type: 
  Country: None (occurrence: None)
  Receive Date: 20090320
  Receipt Date: 20090309
  Transmission Date: 20090719
  Serious: Yes (Other)
  Sender: FDA-Public Use
  Company Number: US-PFIZER INC-2009180117

PATIENT
  Age: 77 Year
  Sex: Female

DRUGS (5)
  1. LIPITOR [Suspect]
     Dosage: 5 MG, 1X/DAY
  2. LEVOTHYROXINE SODIUM [Concomitant]
  3. HYDROCHLOROTHIAZIDE [Concomitant]
  4. ALENDRONATE SODIUM [Concomitant]
  5. ACETYLSALICYLIC ACID [Suspect]

REACTIONS (2)
  - CYSTITIS HAEMORRHAGIC [None]
  - MYALGIA [None]
